FAERS Safety Report 10925346 (Version 1)
Quarter: 2015Q1

REPORT INFORMATION
  Report Type: Spontaneous
  Country: US (occurrence: None)
  Receive Date: 20150316
  Receipt Date: 20150316
  Transmission Date: 20150721
  Serious: Yes (Other)
  Sender: FDA-Public Use
  Company Number: None

PATIENT
  Age: 60 Year
  Sex: Male
  Weight: 72.58 kg

DRUGS (2)
  1. PROSTATE ESSENTIAL PLUS 2 [Concomitant]
  2. TERAZOSIN [Suspect]
     Active Substance: TERAZOSIN\TERAZOSIN HYDROCHLORIDE
     Route: 048

REACTIONS (2)
  - Night sweats [None]
  - Dry skin [None]

NARRATIVE: CASE EVENT DATE: 20150315
